FAERS Safety Report 13532914 (Version 1)
Quarter: 2017Q2

REPORT INFORMATION
  Report Type: Report from Study
  Country: US (occurrence: US)
  Receive Date: 20170510
  Receipt Date: 20170510
  Transmission Date: 20170830
  Serious: Yes (Hospitalization, Disabling, Other)
  Sender: FDA-Public Use
  Company Number: US-REGENERON PHARMACEUTICALS, INC.-2017-15339

PATIENT

DRUGS (2)
  1. EYLEA [Suspect]
     Active Substance: AFLIBERCEPT
     Indication: RETINAL VEIN OCCLUSION
     Dosage: UNK, MONTHLY, OS
     Dates: start: 201703
  2. EYLEA [Suspect]
     Active Substance: AFLIBERCEPT
     Dosage: UNK UNK, SINGLE, OS, DATE OF LAST DOSE
     Dates: start: 201704, end: 201704

REACTIONS (2)
  - Blindness transient [Recovered/Resolved]
  - Hip surgery [Unknown]

NARRATIVE: CASE EVENT DATE: 20170428
